FAERS Safety Report 11736146 (Version 2)
Quarter: 2016Q1

REPORT INFORMATION
  Report Type: Spontaneous
  Country: US (occurrence: US)
  Receive Date: 20151113
  Receipt Date: 20160322
  Transmission Date: 20160525
  Serious: No
  Sender: FDA-Public Use
  Company Number: US-JNJFOC-20150919481

PATIENT
  Sex: Female

DRUGS (1)
  1. TOPAMAX [Suspect]
     Active Substance: TOPIRAMATE
     Indication: MIGRAINE PROPHYLAXIS
     Route: 048

REACTIONS (7)
  - Disturbance in attention [Recovered/Resolved]
  - Drug ineffective [Unknown]
  - Dizziness [Unknown]
  - Somnolence [Recovered/Resolved]
  - Feeling abnormal [Unknown]
  - Activities of daily living impaired [Unknown]
  - Feeling jittery [Unknown]
